FAERS Safety Report 14535409 (Version 2)
Quarter: 2018Q2

REPORT INFORMATION
  Report Type: Spontaneous
  Country: US (occurrence: US)
  Receive Date: 20180215
  Receipt Date: 20180426
  Transmission Date: 20180711
  Serious: No
  Sender: FDA-Public Use
  Company Number: US-BRISTOL-MYERS SQUIBB COMPANY-BMS-2018-014724

PATIENT
  Sex: Male
  Weight: 111.11 kg

DRUGS (1)
  1. ELIQUIS [Suspect]
     Active Substance: APIXABAN
     Indication: PULMONARY EMBOLISM
     Dosage: 5 MG, BID
     Route: 048

REACTIONS (7)
  - Chest pain [Unknown]
  - Prescribed underdose [Unknown]
  - Headache [Unknown]
  - Ear pain [Unknown]
  - Tinnitus [Unknown]
  - Fatigue [Unknown]
  - Swelling [Unknown]
